FAERS Safety Report 5634162-5 (Version None)
Quarter: 2008Q1

REPORT INFORMATION
  Report Type: 
  Country: None (occurrence: None)
  Receive Date: 20080219
  Receipt Date: 20080211
  Transmission Date: 20080703
  Serious: Yes (Hospitalization)
  Sender: FDA-Public Use
  Company Number: 2006-04-0044

PATIENT
  Age: 65 Year
  Sex: Male

DRUGS (10)
  1. DESLORATADINE [Suspect]
     Indication: DRUG USE FOR UNKNOWN INDICATION
     Dosage: 1 DF; QD;
  2. INDAPAMIDE [Suspect]
     Indication: DRUG USE FOR UNKNOWN INDICATION
     Dosage: 1 DF; QD
  3. GLUCOPHAGE [Suspect]
     Indication: DRUG USE FOR UNKNOWN INDICATION
     Dosage: 2 DF; QD
  4. TENORDATE (NIF-TEN) [Suspect]
     Indication: DRUG USE FOR UNKNOWN INDICATION
     Dosage: 1 DF; QD
  5. ATORVASTATIN CALCIUM [Suspect]
     Indication: DRUG USE FOR UNKNOWN INDICATION
     Dosage: 1 DF; QD
  6. NEXIUM [Suspect]
     Indication: DRUG USE FOR UNKNOWN INDICATION
     Dosage: 1 DF; QD
  7. IKOREL (NICORANDIL) (CON.) [Concomitant]
  8. PLAVIX (CLOPIDOGREL) (CON.) [Concomitant]
  9. TAMSULOSIN HYDROCHLORIDE (CON.) [Concomitant]
  10. INSULIN ASPART (CON.) [Concomitant]

REACTIONS (1)
  - HEPATITIS CHOLESTATIC [None]
